FAERS Safety Report 8268879-3 (Version None)
Quarter: 2012Q2

REPORT INFORMATION
  Report Type: 
  Country: None (occurrence: None)
  Receive Date: 20120409
  Receipt Date: 20120405
  Transmission Date: 20120825
  Serious: Yes (Death, Other)
  Sender: FDA-Public Use
  Company Number: IN-CUBIST-2012S1000328

PATIENT
  Age: 54 Year
  Sex: Male

DRUGS (1)
  1. CUBICIN [Suspect]
     Indication: ENTEROCOCCAL INFECTION
     Route: 065
     Dates: start: 20120328

REACTIONS (4)
  - CARDIOPULMONARY FAILURE [None]
  - LIVER DISORDER [None]
  - MULTI-ORGAN FAILURE [None]
  - SEPTIC SHOCK [None]
